FAERS Safety Report 25440179 (Version 3)
Quarter: 2025Q3

REPORT INFORMATION
  Report Type: Spontaneous
  Country: GB (occurrence: GB)
  Receive Date: 20250616
  Receipt Date: 20250730
  Transmission Date: 20251020
  Serious: No
  Sender: PFIZER
  Company Number: GB-PFIZER INC-PV202500026759

PATIENT
  Age: 32 Year
  Sex: Male

DRUGS (1)
  1. GENOTROPIN [Suspect]
     Active Substance: SOMATROPIN

REACTIONS (2)
  - Device use error [Unknown]
  - Device defective [Unknown]
